FAERS Safety Report 9785428 (Version 1)
Quarter: 2013Q4

REPORT INFORMATION
  Report Type: Spontaneous
  Country: US (occurrence: None)
  Receive Date: 20131224
  Receipt Date: 20131224
  Transmission Date: 20140711
  Serious: Yes (Life-Threatening, Hospitalization)
  Sender: FDA-Public Use
  Company Number: 2013/220

PATIENT
  Age: 47 Year
  Sex: Female
  Weight: 110 kg

DRUGS (4)
  1. AMLODIPINE (NO PREF. NAME) 5 MG [Suspect]
     Route: 048
  2. ETHANOL [Suspect]
  3. ZIPRASIDONE [Concomitant]
  4. PREGABALIN [Concomitant]

REACTIONS (15)
  - Tachycardia [None]
  - Blood pressure decreased [None]
  - Anxiety [None]
  - Haemodynamic instability [None]
  - General physical health deterioration [None]
  - Metabolic acidosis [None]
  - Blood glucose increased [None]
  - Pleural effusion [None]
  - White blood cell count increased [None]
  - Overdose [None]
  - Toxicity to various agents [None]
  - Nodal rhythm [None]
  - Muscle contractions involuntary [None]
  - Skin warm [None]
  - Tongue disorder [None]
